FAERS Safety Report 12482403 (Version 1)
Quarter: 2016Q2

REPORT INFORMATION
  Report Type: Spontaneous
  Country: US (occurrence: US)
  Receive Date: 20160620
  Receipt Date: 20160620
  Transmission Date: 20160815
  Serious: No
  Sender: FDA-Public Use
  Company Number: US-MISSION PHARMACAL COMPANY-1054075

PATIENT
  Age: 59 Year
  Sex: Female

DRUGS (2)
  1. THIOLA [Suspect]
     Active Substance: TIOPRONIN
     Indication: CYSTINURIA
     Route: 065
     Dates: start: 20150206, end: 201505
  2. MEDICATION BUT IT WAS NOT SPECIFIED. PRESUMED TO CONTROL BLOOD SUGAR.. [Concomitant]

REACTIONS (4)
  - Blood glucose increased [Unknown]
  - Fatigue [Unknown]
  - Abdominal pain [Unknown]
  - Pruritus [Unknown]
